FAERS Safety Report 24987125 (Version 1)
Quarter: 2025Q1

REPORT INFORMATION
  Report Type: Spontaneous
  Country: GB (occurrence: GB)
  Receive Date: 20250219
  Receipt Date: 20250219
  Transmission Date: 20250409
  Serious: Yes (Hospitalization, Other)
  Sender: MERZ
  Company Number: GB-ACORDA THERAPEUTICS IRELAND LIMITED-ACO_176603_2025

PATIENT

DRUGS (1)
  1. DALFAMPRIDINE [Suspect]
     Active Substance: DALFAMPRIDINE
     Indication: Multiple sclerosis
     Dosage: 10 MILLIGRAM, BID
     Route: 048

REACTIONS (3)
  - Cerebrovascular accident [Unknown]
  - Immobile [Unknown]
  - Infection [Unknown]
